FAERS Safety Report 10916833 (Version 1)
Quarter: 2015Q1

REPORT INFORMATION
  Report Type: Spontaneous
  Country: JP (occurrence: JP)
  Receive Date: 20150316
  Receipt Date: 20150316
  Transmission Date: 20150721
  Serious: Yes (Other)
  Sender: FDA-Public Use
  Company Number: JP-ELI_LILLY_AND_COMPANY-JP201502006491

PATIENT
  Age: 68 Year
  Sex: Female
  Weight: 43 kg

DRUGS (5)
  1. MAGLAX [Concomitant]
     Active Substance: MAGNESIUM OXIDE
     Indication: CONSTIPATION
     Dosage: UNK
     Route: 048
     Dates: start: 20150129
  2. PREDONINE [Concomitant]
     Active Substance: PREDNISOLONE\PREDNISOLONE ACETATE\PREDNISOLONE SODIUM SUCCINATE
     Indication: DERMATOMYOSITIS
     Dosage: UNK
     Route: 048
     Dates: start: 20150128
  3. FORTEO [Suspect]
     Active Substance: TERIPARATIDE
     Indication: OSTEOPOROSIS
     Dosage: UNK
     Route: 058
     Dates: start: 20150129
  4. PARIET [Suspect]
     Active Substance: RABEPRAZOLE SODIUM
     Indication: GASTRITIS
     Dosage: UNK
     Route: 048
     Dates: start: 20150129, end: 20150212
  5. RABECURE [Concomitant]
     Active Substance: RABEPRAZOLE SODIUM
     Indication: HELICOBACTER INFECTION
     Dosage: UNK
     Dates: start: 20150121, end: 20150127

REACTIONS (3)
  - Inappropriate antidiuretic hormone secretion [Unknown]
  - Hyponatraemia [Recovering/Resolving]
  - Renal salt-wasting syndrome [Unknown]

NARRATIVE: CASE EVENT DATE: 20150202
